FAERS Safety Report 9465823 (Version 1)
Quarter: 2013Q3

REPORT INFORMATION
  Report Type: Spontaneous
  Country: US (occurrence: US)
  Receive Date: 20130820
  Receipt Date: 20130820
  Transmission Date: 20140515
  Serious: Yes (Other)
  Sender: FDA-Public Use
  Company Number: US-PFIZER INC-2013239003

PATIENT
  Sex: Male

DRUGS (3)
  1. CELEBREX [Suspect]
     Indication: GOUT
     Dosage: 400 MG (TWO ORAL CAPSULES OF 200MG), AS NEEDED
     Route: 048
  2. CELEBREX [Suspect]
     Dosage: 200 MG, 2X/DAY
     Route: 048
  3. COLCRYS [Suspect]
     Indication: GOUT
     Dosage: 2X/DAY
     Route: 048
     Dates: start: 2013

REACTIONS (2)
  - Diarrhoea haemorrhagic [Unknown]
  - Off label use [Unknown]
